FAERS Safety Report 4665185-0 (Version None)
Quarter: 2005Q2

REPORT INFORMATION
  Report Type: 
  Country: None (occurrence: None)
  Receive Date: 20050517
  Receipt Date: 20050503
  Transmission Date: 20051028
  Serious: Yes (Other)
  Sender: FDA-Public Use
  Company Number: B0380465A

PATIENT
  Age: 42 Year
  Sex: Female

DRUGS (1)
  1. LITHIUM SALT (LITHIUM SALT)   (GENERIC) [Suspect]
     Indication: BIPOLAR DISORDER

REACTIONS (2)
  - BASEDOW'S DISEASE [None]
  - HYPOTHYROIDISM [None]
